FAERS Safety Report 8841718 (Version 1)
Quarter: 2012Q4

REPORT INFORMATION
  Report Type: 
  Country: TR (occurrence: TR)
  Receive Date: 20121016
  Receipt Date: 20121016
  Transmission Date: 20130627
  Serious: Yes (Hospitalization)
  Sender: FDA-Public Use
  Company Number: TR-009507513-1210TUR005769

PATIENT
  Sex: Male

DRUGS (7)
  1. VICTRELIS [Suspect]
     Indication: CHRONIC HEPATITIS
     Dosage: 800 mg, UNK
     Route: 048
     Dates: end: 20120602
  2. PEGINTRON [Suspect]
     Indication: CHRONIC HEPATITIS
     Dosage: UNK
     Dates: start: 20120530, end: 20120602
  3. REBETOL [Suspect]
     Indication: CHRONIC HEPATITIS
     Dosage: 800 mg, UNK
     Route: 048
     Dates: start: 20120530, end: 20120602
  4. SALMETEROL [Concomitant]
     Route: 055
  5. FLUTICASONE [Concomitant]
     Route: 055
  6. IPRATROPIUM BROMIDE [Concomitant]
     Route: 055
  7. ALBUTEROL [Concomitant]
     Route: 055

REACTIONS (2)
  - Anaemia [Unknown]
  - Asthenia [Unknown]
